FAERS Safety Report 4440395-6 (Version None)
Quarter: 2004Q3

REPORT INFORMATION
  Report Type: 
  Country: None (occurrence: None)
  Receive Date: 20040903
  Receipt Date: 20040830
  Transmission Date: 20050211
  Serious: Yes (Other)
  Sender: FDA-Public Use
  Company Number: PHBS2004CZ11510

PATIENT
  Age: 70 Year
  Sex: Female

DRUGS (5)
  1. LAMISIL [Suspect]
     Dosage: 250 MG, QD
     Route: 048
     Dates: start: 20040610, end: 20040701
  2. LOMIR [Concomitant]
     Route: 065
  3. BISOCARD [Concomitant]
     Route: 065
  4. LORADUR [Concomitant]
     Route: 065
  5. LORISTA [Concomitant]
     Route: 065

REACTIONS (3)
  - EXANTHEM [None]
  - HYPERHIDROSIS [None]
  - PITYRIASIS ROSEA [None]
